FAERS Safety Report 25869705 (Version 1)
Quarter: 2025Q4

REPORT INFORMATION
  Report Type: Report from Study
  Country: US (occurrence: US)
  Receive Date: 20251001
  Receipt Date: 20251001
  Transmission Date: 20260118
  Serious: Yes (Other)
  Sender: ALEXION PHARMACEUTICALS
  Company Number: US-AstraZeneca-CH-00960003A

PATIENT
  Sex: Female

DRUGS (1)
  1. OLAPARIB [Suspect]
     Active Substance: OLAPARIB
     Indication: Malignant neoplasm progression

REACTIONS (2)
  - Intestinal obstruction [Unknown]
  - Abdominal pain [Unknown]
